FAERS Safety Report 4691293-4 (Version None)
Quarter: 2005Q2

REPORT INFORMATION
  Report Type: 
  Country: None (occurrence: None)
  Receive Date: 20050610
  Receipt Date: 20050602
  Transmission Date: 20051028
  Serious: Yes (Other)
  Sender: FDA-Public Use
  Company Number: US-2005-009715

PATIENT
  Age: 85 Year
  Sex: Female
  Weight: 100.7 kg

DRUGS (1)
  1. ULTRAVIST PHARMACY BULK PACKAGE (370 MG/ML) (IOPROMIDE) INJECTION [Suspect]
     Indication: COMPUTERISED TOMOGRAM ABDOMEN
     Dosage: 110 ML, 1 DOSE, INTRAVENOUS
     Route: 042
     Dates: start: 20050527, end: 20050527

REACTIONS (4)
  - BLOOD PRESSURE DECREASED [None]
  - CARDIAC ARREST [None]
  - HEART RATE DECREASED [None]
  - PROCEDURAL COMPLICATION [None]
